FAERS Safety Report 6261230-X (Version None)
Quarter: 2009Q3

REPORT INFORMATION
  Report Type: 
  Country: None (occurrence: None)
  Receive Date: 20090709
  Receipt Date: 20090626
  Transmission Date: 20100115
  Serious: Yes (Other)
  Sender: FDA-Public Use
  Company Number: AU-PFIZER INC-2009223085

PATIENT
  Age: 53 Year

DRUGS (4)
  1. ZOLOFT [Suspect]
     Indication: ANXIETY
     Dosage: 25 MG DAILY
     Route: 048
     Dates: start: 20090528, end: 20090602
  2. ZOLOFT [Suspect]
     Indication: DEPRESSION
  3. MIRTAZAPINE [Concomitant]
     Indication: ANXIETY
     Dosage: 7.5 MG, UNK
     Dates: start: 20090101
  4. NEO-MERCAZOLE TAB [Concomitant]
     Indication: BASEDOW'S DISEASE
     Dosage: 5 MG, 1X/DAY
     Route: 048
     Dates: start: 20041201

REACTIONS (8)
  - DIARRHOEA [None]
  - DYSPHAGIA [None]
  - EYE SWELLING [None]
  - NERVOUSNESS [None]
  - PALPITATIONS [None]
  - PYREXIA [None]
  - SALIVARY HYPERSECRETION [None]
  - SWELLING FACE [None]
